FAERS Safety Report 19990543 (Version 1)
Quarter: 2021Q4

REPORT INFORMATION
  Report Type: Spontaneous
  Country: US (occurrence: US)
  Receive Date: 20211025
  Receipt Date: 20211025
  Transmission Date: 20220303
  Serious: No
  Sender: FDA-Public Use
  Company Number: US-SA-2021SA350865

PATIENT
  Sex: Female

DRUGS (2)
  1. SELSUN BLUE MEDICATED [Suspect]
     Active Substance: SELENIUM SULFIDE
  2. SELSUN BLUE MOISTURIZING TREATMENT ANTI-DAND. [Concomitant]

REACTIONS (1)
  - Drug ineffective [Unknown]
